FAERS Safety Report 4783065-7 (Version None)
Quarter: 2005Q3

REPORT INFORMATION
  Report Type: 
  Country: None (occurrence: None)
  Receive Date: 20050928
  Receipt Date: 20050928
  Transmission Date: 20060218
  Serious: Yes (Life-Threatening, Hospitalization)
  Sender: FDA-Public Use
  Company Number: None

PATIENT
  Age: 56 Year
  Sex: Male
  Weight: 95 kg

DRUGS (7)
  1. RISPERDAL [Suspect]
     Indication: BIPOLAR DISORDER
  2. HALDOL [Suspect]
     Indication: PSYCHOTIC DISORDER
  3. HALDOL [Concomitant]
  4. TRAZODONE [Concomitant]
  5. WELLBUTRIN [Concomitant]
  6. PROZAC [Concomitant]
  7. RISPERDAL [Concomitant]

REACTIONS (1)
  - NEUROLEPTIC MALIGNANT SYNDROME [None]
